FAERS Safety Report 11062297 (Version 2)
Quarter: 2015Q2

REPORT INFORMATION
  Report Type: Spontaneous
  Country: US (occurrence: US)
  Receive Date: 20150424
  Receipt Date: 20150601
  Transmission Date: 20150821
  Serious: No
  Sender: FDA-Public Use
  Company Number: US-BAYER-2015-122775

PATIENT
  Age: 55 Year
  Sex: Female
  Weight: 58.96 kg

DRUGS (15)
  1. OMEPRAZOLE. [Concomitant]
     Active Substance: OMEPRAZOLE
     Indication: GASTROOESOPHAGEAL REFLUX DISEASE
     Dosage: 20 MG, QD, 15 YEARS
     Route: 048
  2. VITAMIN D [Concomitant]
     Active Substance: CHOLECALCIFEROL
     Indication: SUPPLEMENTATION THERAPY
     Dosage: 2 * 2000 IU QD
     Route: 048
  3. VITAMIN C [Concomitant]
     Active Substance: ASCORBIC ACID
     Indication: SUPPLEMENTATION THERAPY
     Dosage: 500 MG, QD
     Route: 048
  4. FLAXSEED [Concomitant]
     Active Substance: FLAX SEED
     Indication: SUPPLEMENTATION THERAPY
     Dosage: ONE 1400 MG, QD
  5. MAGNESIUM [Concomitant]
     Active Substance: MAGNESIUM
     Indication: SUPPLEMENTATION THERAPY
     Dosage: TWO 400 MG, QD
  6. TOPIRAMATE. [Concomitant]
     Active Substance: TOPIRAMATE
     Indication: MIGRAINE
     Dosage: 100 MG, QD
     Route: 048
     Dates: start: 2005
  7. GABAPENTIN. [Concomitant]
     Active Substance: GABAPENTIN
     Indication: MIGRAINE
     Dosage: 600 MG, TID, 20 YEARS
     Route: 048
     Dates: start: 1995
  8. LEVOTHYROXINE [Concomitant]
     Active Substance: LEVOTHYROXINE
     Indication: BLOOD THYROID STIMULATING HORMONE DECREASED
     Dosage: 75 MCG/24HR, QD
     Dates: start: 2000
  9. CLOZAPINE. [Concomitant]
     Active Substance: CLOZAPINE
     Indication: BIPOLAR DISORDER
     Dosage: 2.5*50 MG, QD
     Route: 048
     Dates: start: 19900101
  10. ASPIRIN. [Concomitant]
     Active Substance: ASPIRIN
     Indication: SUPPLEMENTATION THERAPY
     Dosage: 81 MG, QD
     Route: 048
  11. GLUCOSAMINE SULFATE W/CHONDROITIN [Concomitant]
     Indication: SUPPLEMENTATION THERAPY
     Dosage: 1500/21200 MG, BID
     Route: 048
  12. CLIMARA [Suspect]
     Active Substance: ESTRADIOL
     Indication: MIGRAINE
     Dosage: 0.05 MG, OW
     Route: 062
     Dates: start: 2012
  13. CALCIUM CARBONATE W/VITAMIN D NOS [Concomitant]
     Active Substance: CALCIUM CARBONATE\VITAMIN D
     Indication: SUPPLEMENTATION THERAPY
     Dosage: ONE 600 MG + 800 IU
     Route: 048
  14. LAMOTRIGINE. [Concomitant]
     Active Substance: LAMOTRIGINE
     Indication: BIPOLAR DISORDER
     Dosage: 25 MG, 7ID
     Route: 048
     Dates: start: 2010
  15. VITAMIN B12 [Concomitant]
     Active Substance: CYANOCOBALAMIN
     Indication: SUPPLEMENTATION THERAPY
     Dosage: HALF  A 500 MG
     Route: 048

REACTIONS (4)
  - Mood swings [Recovered/Resolved]
  - Hot flush [Recovered/Resolved]
  - Drug ineffective for unapproved indication [None]
  - Off label use [None]

NARRATIVE: CASE EVENT DATE: 20150201
